FAERS Safety Report 4727830-0 (Version None)
Quarter: 2005Q3

REPORT INFORMATION
  Report Type: 
  Country: None (occurrence: None)
  Receive Date: 20050727
  Receipt Date: 20050720
  Transmission Date: 20060218
  Serious: Yes (Life-Threatening, Hospitalization, Other)
  Sender: FDA-Public Use
  Company Number: A-CH2003-01874

PATIENT
  Age: 23 Year
  Sex: Female

DRUGS (5)
  1. TRACLEER [Suspect]
     Indication: PULMONARY HYPERTENSION
     Dosage: 125 MG, BID, ORAL
     Route: 048
     Dates: start: 20020817, end: 20030109
  2. TRACLEER [Suspect]
     Indication: PULMONARY HYPERTENSION
     Dosage: 125 MG, BID, ORAL
     Route: 048
     Dates: start: 20030523
  3. TRACLEER [Suspect]
     Indication: PULMONARY HYPERTENSION
     Dosage: 62.5 MG, BID, ORAL
     Route: 048
     Dates: start: 20020717, end: 20020817
  4. ILOPROST (ILOPROST) [Concomitant]
  5. WARFARIN SODIUM [Concomitant]

REACTIONS (8)
  - CAESAREAN SECTION [None]
  - CARDIO-RESPIRATORY ARREST [None]
  - COUGH [None]
  - DYSPNOEA [None]
  - FALL [None]
  - PREGNANCY [None]
  - PREMATURE LABOUR [None]
  - UTERINE CONTRACTIONS DURING PREGNANCY [None]
